FAERS Safety Report 8980811 (Version 2)
Quarter: 2013Q1

REPORT INFORMATION
  Report Type: Spontaneous
  Country: FR (occurrence: FR)
  Receive Date: 20121221
  Receipt Date: 20130123
  Transmission Date: 20140127
  Serious: Yes (Death, Life-Threatening, Hospitalization, Other)
  Sender: FDA-Public Use
  Company Number: FR-BRISTOL-MYERS SQUIBB COMPANY-17210493

PATIENT
  Age: 78 Year
  Sex: Female

DRUGS (31)
  1. PERFALGAN [Suspect]
     Indication: ANALGESIC THERAPY
     Dosage: 13-JAN-2012 TO 20-JAN-2012?25-JAN-2012 TO 30-JAN-2012
     Route: 042
     Dates: start: 20120113, end: 20120130
  2. MORPHINE SULFATE [Suspect]
     Dosage: 14JAN2012-16JAN2012?19JAN2012-ONG
     Dates: start: 20120114
  3. AMIKACIN [Suspect]
     Dates: start: 20120121, end: 20120122
  4. AMINO ACIDS\DEXTROSE\ELECTROLYTES\SOYBEAN OIL [Suspect]
  5. FLAGYL [Suspect]
     Dates: start: 20120112, end: 20120119
  6. TYGACIL [Suspect]
     Dates: start: 20120112, end: 20120119
  7. ACUPAN [Suspect]
     Indication: ANALGESIC THERAPY
     Dosage: 13JAN2012-19JAN2012?UNK-31JAN2012
     Dates: start: 20120113
  8. FRESUBIN [Suspect]
     Dates: start: 20120119, end: 20120201
  9. GENTAMICIN [Suspect]
     Dates: start: 20120115
  10. TAZOCILLINE [Suspect]
     Dates: start: 20120121, end: 20120201
  11. CANCIDAS [Suspect]
     Dates: start: 20120122, end: 20120201
  12. VANCOMYCIN [Suspect]
     Dates: start: 20120121, end: 20120624
  13. SONDALIS [Suspect]
     Dosage: 25JAN2012-28JAN2012?31JAN2012-01FEB2012
     Dates: start: 20120125
  14. ATARAX [Suspect]
     Dosage: 15-JAN-2012 TO 17-JAN-2012?19-JAN-2012 TO 20-JAN-2012
     Dates: start: 20120115, end: 20120120
  15. CORDARONE [Suspect]
     Dates: start: 20120116, end: 20120117
  16. INEXIUM [Suspect]
     Dates: start: 20120112
  17. NORADRENALINE [Concomitant]
     Dosage: 12JAN2012-16JAN2012?21JAN2012-29JAN2012
     Dates: start: 20120112
  18. ACTRAPID [Concomitant]
     Dates: start: 20120112
  19. LASILIX [Concomitant]
     Dates: start: 20120112, end: 20120121
  20. CALCIPARINE [Concomitant]
     Dates: start: 20120112
  21. VOGALENE [Concomitant]
  22. COAPROVEL [Concomitant]
  23. DIFFU-K [Concomitant]
  24. EZETROL [Concomitant]
  25. PROPRANOLOL [Concomitant]
  26. ALLOPURINOL [Concomitant]
  27. MIANSERIN [Concomitant]
  28. ALPRAZOLAM [Concomitant]
  29. HEXAQUINE [Concomitant]
  30. DICLOFENAC [Concomitant]
  31. PREDNISONE [Concomitant]

REACTIONS (6)
  - Septic shock [Fatal]
  - Peritonitis [Unknown]
  - Intestinal perforation [Unknown]
  - Cholestasis [Unknown]
  - Thrombocytopenia [Unknown]
  - Leukopenia [Recovered/Resolved]
